FAERS Safety Report 7786695-3 (Version None)
Quarter: 2011Q3

REPORT INFORMATION
  Report Type: 
  Country: None (occurrence: None)
  Receive Date: 20110929
  Receipt Date: 20110926
  Transmission Date: 20111222
  Serious: Yes (Other)
  Sender: FDA-Public Use
  Company Number: US-PFIZER INC-2011229583

PATIENT
  Sex: Female

DRUGS (6)
  1. LEVOTHYROXINE [Concomitant]
     Indication: THYROID DISORDER
     Dosage: 100 UG, DAILY
  2. TRAMADOL [Concomitant]
     Indication: BONE PAIN
  3. GABAPENTIN [Suspect]
     Indication: OSTEOARTHRITIS
     Dosage: 600 MG, 3X/DAY
     Dates: start: 20110926
  4. TRAMADOL [Concomitant]
     Indication: MYELOPATHY
     Dosage: UNK
     Dates: start: 20070101
  5. TRAMADOL [Concomitant]
     Indication: NECK PAIN
  6. TRAMADOL [Concomitant]
     Indication: BACK PAIN

REACTIONS (4)
  - DYSSTASIA [None]
  - MIGRAINE [None]
  - SOMNOLENCE [None]
  - COORDINATION ABNORMAL [None]
